FAERS Safety Report 7913280-2 (Version None)
Quarter: 2011Q4

REPORT INFORMATION
  Report Type: 
  Country: None (occurrence: None)
  Receive Date: 20111114
  Receipt Date: 20111104
  Transmission Date: 20120403
  Serious: Yes (Hospitalization, Other)
  Sender: FDA-Public Use
  Company Number: JP-ABBOTT-11P-087-0871585-00

PATIENT
  Age: 26 Year
  Sex: Female

DRUGS (7)
  1. PHENYTOIN [Suspect]
     Route: 048
     Dates: start: 20090801
  2. MEROPENEM [Suspect]
     Indication: ENCEPHALITIS
     Route: 065
  3. ALL OTHER THERAPEUTIC PRODUCTS [Concomitant]
     Indication: PRODUCT USED FOR UNKNOWN INDICATION
  4. STEROIDS [Concomitant]
     Indication: ENCEPHALITIS
  5. ACYCLOVIR [Suspect]
     Indication: ENCEPHALITIS
     Route: 065
  6. PHENYTOIN [Suspect]
     Indication: CONVULSION
     Route: 042
     Dates: start: 20090701
  7. VALPROATE SODIUM [Suspect]
     Indication: CONVULSION
     Route: 065

REACTIONS (10)
  - DECREASED APPETITE [None]
  - NAUSEA [None]
  - DYSPNOEA [None]
  - BLOOD LACTATE DEHYDROGENASE INCREASED [None]
  - APLASIA PURE RED CELL [None]
  - TACHYCARDIA [None]
  - FATIGUE [None]
  - RED BLOOD CELL COUNT DECREASED [None]
  - PALPITATIONS [None]
  - CONJUNCTIVAL HYPERAEMIA [None]
